FAERS Safety Report 14330671 (Version 1)
Quarter: 2017Q4

REPORT INFORMATION
  Report Type: Report from Study
  Country: US (occurrence: US)
  Receive Date: 20171228
  Receipt Date: 20171228
  Transmission Date: 20180321
  Serious: Yes (Other)
  Sender: FDA-Public Use
  Company Number: US-ROCHE-1954265

PATIENT
  Sex: Female
  Weight: 63.56 kg

DRUGS (1)
  1. RITUXAN [Suspect]
     Active Substance: RITUXIMAB
     Indication: RHEUMATOID ARTHRITIS
     Dosage: ON DAY 1 AND DAY 15 EVERY 6 MONTHS
     Route: 042
     Dates: end: 201702

REACTIONS (4)
  - Limb injury [Not Recovered/Not Resolved]
  - Body height decreased [Unknown]
  - Pseudomonas infection [Unknown]
  - Impaired healing [Unknown]
